FAERS Safety Report 24087067 (Version 2)
Quarter: 2025Q2

REPORT INFORMATION
  Report Type: Spontaneous
  Country: FR (occurrence: FR)
  Receive Date: 20240713
  Receipt Date: 20250628
  Transmission Date: 20250716
  Serious: Yes (Other)
  Sender: AUROBINDO
  Company Number: FR-ZYDUS-109033

PATIENT
  Age: 33 Year
  Sex: Female

DRUGS (2)
  1. TRAMADOL [Suspect]
     Active Substance: TRAMADOL
     Indication: Product used for unknown indication
     Dosage: 1300 MILLIGRAM, ONCE A DAY (IN THE MORNING AND 6 IN THE EVENING)
     Route: 065
  2. TRAMADOL [Suspect]
     Active Substance: TRAMADOL
     Route: 065

REACTIONS (4)
  - Epilepsy [Unknown]
  - Drug withdrawal syndrome [Unknown]
  - Drug use disorder [Unknown]
  - Prescribed overdose [Unknown]
